FAERS Safety Report 9735799 (Version 2)
Quarter: 2015Q3

REPORT INFORMATION
  Report Type: Spontaneous
  Country: US (occurrence: US)
  Receive Date: 20131206
  Receipt Date: 20150804
  Transmission Date: 20151125
  Serious: No
  Sender: FDA-Public Use
  Company Number: US-GILEAD-2009-0023098

PATIENT
  Age: 47 Year
  Sex: Male
  Weight: 71.67 kg

DRUGS (11)
  1. LETAIRIS [Suspect]
     Active Substance: AMBRISENTAN
     Indication: PULMONARY ARTERIAL HYPERTENSION
     Route: 048
     Dates: start: 20090612
  2. DIOVAN [Concomitant]
     Active Substance: VALSARTAN
  3. DILTIAZEM [Concomitant]
     Active Substance: DILTIAZEM
  4. CARVEDILOL. [Concomitant]
     Active Substance: CARVEDILOL
  5. FUROSEMIDE. [Concomitant]
     Active Substance: FUROSEMIDE
  6. OMEPRAZOLE DR [Concomitant]
     Active Substance: OMEPRAZOLE
  7. FOLIC ACID. [Concomitant]
     Active Substance: FOLIC ACID
  8. METHOTREXATE [Concomitant]
     Active Substance: METHOTREXATE
  9. FEXOFENADINE HCL [Concomitant]
     Active Substance: FEXOFENADINE HYDROCHLORIDE
  10. PREDNISONE-5 [Concomitant]
  11. HYDROXYCHLORQUINE [Concomitant]

REACTIONS (1)
  - Chest discomfort [Unknown]
